FAERS Safety Report 18207488 (Version 1)
Quarter: 2020Q3

REPORT INFORMATION
  Report Type: Spontaneous
  Country: CN (occurrence: CN)
  Receive Date: 20200828
  Receipt Date: 20200828
  Transmission Date: 20201103
  Serious: Yes (Other)
  Sender: FDA-Public Use
  Company Number: CN-BAXTER-2020BAX017509

PATIENT
  Age: 2 Year
  Sex: Male
  Weight: 13 kg

DRUGS (25)
  1. METHOTREXATE. [Suspect]
     Active Substance: METHOTREXATE
     Dosage: DEXAMETHASONE SODIUM PHOSPHATE 2.5 MG + CYTARABINE 0.025 G + METHOTREXATE
     Route: 037
     Dates: start: 20200628, end: 20200628
  2. DEXAMETHASONE SODIUM PHOSPHATE. [Suspect]
     Active Substance: DEXAMETHASONE SODIUM PHOSPHATE
     Dosage: DOSE RE?INTRODUCED, DEXAMETHASONE SODIUM PHOSPHATE + CYTARABINE + METHOTREXATE
     Route: 037
  3. ENDOXAN [Suspect]
     Active Substance: CYCLOPHOSPHAMIDE
     Dosage: CYCLOPHOSPHAMIDE + 0.9% SODIUM CHLORIDE 100 ML
     Route: 041
     Dates: start: 20200624, end: 20200624
  4. ENDOXAN [Suspect]
     Active Substance: CYCLOPHOSPHAMIDE
     Dosage: DOSE RE?INTRODUCED, CYCLOPHOSPHAMIDE + 0.9% SODIUM CHLORIDE
     Route: 041
  5. SAIDESA (CYTARABINE) [Suspect]
     Active Substance: CYTARABINE
     Dosage: DOSE RE?INTRODUCED, CYTARABINE + 5% GLUCOSE
     Route: 041
  6. 5% GLUCOSE  INJECTION [Suspect]
     Active Substance: DEXTROSE
     Dosage: DOSE RE?INTRODUCED, DOXORUBICIN + 5% GLUCOSE
     Route: 041
  7. DOXORUBICIN HYDROCHLORIDE. [Suspect]
     Active Substance: DOXORUBICIN HYDROCHLORIDE
     Dosage: DOSE RE?INTRODUCED, DOXORUBICIN + 5% GLUCOSE
     Route: 041
  8. 5% GLUCOSE  INJECTION [Suspect]
     Active Substance: DEXTROSE
     Dosage: DOSE RE?INTRODUCED, CYTARABINE + 5% GLUCOSE
     Route: 041
  9. SAIDESA (CYTARABINE) [Suspect]
     Active Substance: CYTARABINE
     Dosage: CYTARABINE + 5% GLUCOSE 250 ML
     Route: 041
     Dates: start: 20200624, end: 20200624
  10. 0.9% SODIUM CHLORIDE INJECTION [Suspect]
     Active Substance: SODIUM CHLORIDE
     Dosage: CYCLOPHOSPHAMIDE 0.11 G + 0.9% SODIUM CHLORIDE
     Route: 041
     Dates: start: 20200622, end: 20200623
  11. 5% GLUCOSE  INJECTION [Suspect]
     Active Substance: DEXTROSE
     Indication: MEDICATION DILUTION
     Dosage: DOXORUBICIN 11 MG + 5% GLUCOSE
     Route: 041
     Dates: start: 20200622, end: 20200623
  12. METHOTREXATE. [Suspect]
     Active Substance: METHOTREXATE
     Dosage: DOSE RE?INTRODUCED, DEXAMETHASONE SODIUM PHOSPHATE + CYTARABINE + METHOTREXATE
     Route: 037
  13. ENDOXAN [Suspect]
     Active Substance: CYCLOPHOSPHAMIDE
     Dosage: CYCLOPHOSPHAMIDE + 0.9% SODIUM CHLORIDE 100 ML
     Route: 041
     Dates: start: 20200622, end: 20200623
  14. 0.9% SODIUM CHLORIDE INJECTION [Suspect]
     Active Substance: SODIUM CHLORIDE
     Indication: MEDICATION DILUTION
     Dosage: CYCLOPHOSPHAMIDE 0.44 G + 0.9% SODIUM CHLORIDE
     Route: 041
     Dates: start: 20200621, end: 20200621
  15. 0.9% SODIUM CHLORIDE INJECTION [Suspect]
     Active Substance: SODIUM CHLORIDE
     Dosage: CYCLOPHOSPHAMIDE 0.11 G + 0.9% SODIUM CHLORIDE
     Route: 041
     Dates: start: 20200624, end: 20200624
  16. 0.9% SODIUM CHLORIDE INJECTION [Suspect]
     Active Substance: SODIUM CHLORIDE
     Dosage: DOSE RE?INTRODUCED, CYCLOPHOSPHAMIDE + 0.9% SODIUM CHLORIDE
     Route: 041
  17. METHOTREXATE. [Suspect]
     Active Substance: METHOTREXATE
     Indication: DIFFUSE LARGE B-CELL LYMPHOMA
     Dosage: DEXAMETHASONE SODIUM PHOSPHATE 2.5 MG + CYTARABINE 0.025 G + METHOTREXATE
     Route: 037
     Dates: start: 20200621, end: 20200621
  18. DEXAMETHASONE SODIUM PHOSPHATE. [Suspect]
     Active Substance: DEXAMETHASONE SODIUM PHOSPHATE
     Indication: DIFFUSE LARGE B-CELL LYMPHOMA
     Dosage: DEXAMETHASONE SODIUM PHOSPHATE + CYTARABINE 0.025 G + METHOTREXATE 0.36 ML
     Route: 037
     Dates: start: 20200621, end: 20200621
  19. DOXORUBICIN HYDROCHLORIDE. [Suspect]
     Active Substance: DOXORUBICIN HYDROCHLORIDE
     Indication: DIFFUSE LARGE B-CELL LYMPHOMA
     Dosage: DOXORUBICIN + 5% GLUCOSE 250 ML
     Route: 041
     Dates: start: 20200622, end: 20200623
  20. SAIDESA (CYTARABINE) [Suspect]
     Active Substance: CYTARABINE
     Indication: DIFFUSE LARGE B-CELL LYMPHOMA
     Dosage: DEXAMETHASONE SODIUM PHOSPHATE 2.5 MG + CYTARABINE + METHOTREXATE INJECTION 0.36 ML
     Route: 037
     Dates: start: 20200621, end: 20200621
  21. SAIDESA (CYTARABINE) [Suspect]
     Active Substance: CYTARABINE
     Dosage: DEXAMETHASONE SODIUM PHOSPHATE  2.5 MG + CYTARABINE + METHOTREXATE 0.36 ML
     Route: 037
     Dates: start: 20200628, end: 20200628
  22. SAIDESA (CYTARABINE) [Suspect]
     Active Substance: CYTARABINE
     Dosage: DOSE RE?INTRODUCED, DEXAMETHASONE SODIUM PHOSPHATE  2.5 MG + CYTARABINE + METHOTREXATE 0.36 ML
     Route: 037
  23. ENDOXAN [Suspect]
     Active Substance: CYCLOPHOSPHAMIDE
     Indication: DIFFUSE LARGE B-CELL LYMPHOMA
     Dosage: CYCLOPHOSPHAMIDE + 0.9% SODIUM CHLORIDE 250 ML
     Route: 041
     Dates: start: 20200621, end: 20200621
  24. 5% GLUCOSE  INJECTION [Suspect]
     Active Substance: DEXTROSE
     Dosage: CYTARABINE 1.1 G + 5% GLUCOSE
     Route: 041
     Dates: start: 20200624, end: 20200624
  25. DEXAMETHASONE SODIUM PHOSPHATE. [Suspect]
     Active Substance: DEXAMETHASONE SODIUM PHOSPHATE
     Dosage: DEXAMETHASONE SODIUM PHOSPHATE + CYTARABINE  0.025 G + METHOTREXATE 0.36 ML
     Route: 037
     Dates: start: 20200628, end: 20200628

REACTIONS (1)
  - Myelosuppression [Recovering/Resolving]

NARRATIVE: CASE EVENT DATE: 20200630
